FAERS Safety Report 9909095 (Version 1)
Quarter: 2014Q1

REPORT INFORMATION
  Report Type: Spontaneous
  Country: US (occurrence: None)
  Receive Date: 20140212
  Receipt Date: 20140212
  Transmission Date: 20141002
  Serious: Yes (Other)
  Sender: FDA-Public Use
  Company Number: 20140045

PATIENT
  Age: 33 Year
  Sex: Female

DRUGS (3)
  1. PHENYLEPHRINE HCL [Suspect]
     Indication: SHOCK
     Dosage: INITIAL DOSE UNKNOWN
  2. NOREPINEPHRINE [Suspect]
     Dosage: MIN ON DAY
     Route: 042
  3. ESMOLOL [Concomitant]

REACTIONS (3)
  - Cardiogenic shock [None]
  - Pulmonary oedema [None]
  - Left ventricular dysfunction [None]
